FAERS Safety Report 20321278 (Version 1)
Quarter: 2022Q1

REPORT INFORMATION
  Report Type: Spontaneous
  Country: US (occurrence: US)
  Receive Date: 20220111
  Receipt Date: 20220111
  Transmission Date: 20220424
  Serious: No
  Sender: FDA-Public Use
  Company Number: US-BAYER-2022A003833

PATIENT
  Age: 54 Year
  Sex: Female

DRUGS (2)
  1. ALEVE [Suspect]
     Active Substance: NAPROXEN SODIUM
     Indication: Pain
     Dosage: 1 DF
     Route: 048
     Dates: start: 20220107
  2. ALEVE [Suspect]
     Active Substance: NAPROXEN SODIUM
     Indication: Sinus headache

REACTIONS (1)
  - Expired product administered [Unknown]
